FAERS Safety Report 11566493 (Version 1)
Quarter: 2015Q3

REPORT INFORMATION
  Report Type: Report from Study
  Country: DE (occurrence: DE)
  Receive Date: 20150929
  Receipt Date: 20150929
  Transmission Date: 20151125
  Serious: Yes (Other)
  Sender: FDA-Public Use
  Company Number: DE-BEH-2015054358

PATIENT
  Age: 28 Year
  Sex: Female
  Weight: 90 kg

DRUGS (5)
  1. CLEXANE [Concomitant]
     Active Substance: ENOXAPARIN SODIUM
  2. FOLIO FORTE [Concomitant]
     Active Substance: FOLIC ACID\VITAMINS
     Route: 048
     Dates: start: 20090923, end: 20100223
  3. PRIVIGEN [Suspect]
     Active Substance: HUMAN IMMUNOGLOBULIN G
     Indication: IMMUNODEFICIENCY COMMON VARIABLE
     Dosage: INFUSION RATE: MINIMUM 1.5 ML/MIN; MAXIMUM 4.0 ML/MIN.
     Route: 042
     Dates: start: 20090929, end: 20090929
  4. FOLIO FORTE [Concomitant]
     Active Substance: FOLIC ACID\VITAMINS
     Indication: PREGNANCY
     Dosage: RECEIVED IN THE GESTATIONAL WEEK 19
     Route: 048
     Dates: start: 20100324, end: 20100427
  5. BISOPROLOL [Concomitant]
     Active Substance: BISOPROLOL
     Indication: HYPERTENSION
     Dosage: RECEIVED AT A GESTATION WEEK OF 10
     Route: 048
     Dates: end: 20100120

REACTIONS (4)
  - Exposure during pregnancy [Recovered/Resolved]
  - Selective abortion [Recovered/Resolved]
  - Abortion [Recovered/Resolved]
  - Vaginal haemorrhage [Unknown]

NARRATIVE: CASE EVENT DATE: 2009
